FAERS Safety Report 8598952-1 (Version None)
Quarter: 2012Q3

REPORT INFORMATION
  Report Type: 
  Country: None (occurrence: None)
  Receive Date: 20120816
  Receipt Date: 19951101
  Transmission Date: 20120928
  Serious: Yes (Hospitalization)
  Sender: FDA-Public Use
  Company Number: US-ROCHE-1100962

PATIENT
  Age: 60 Year
  Sex: Male

DRUGS (4)
  1. ACTIVASE [Suspect]
     Indication: ACUTE MYOCARDIAL INFARCTION
  2. HEPARIN [Concomitant]
  3. MORPHINE [Concomitant]
  4. NITROGLYCERIN [Concomitant]

REACTIONS (8)
  - ARTHRALGIA [None]
  - OXYGEN SATURATION DECREASED [None]
  - VOMITING [None]
  - DYSPNOEA [None]
  - NAUSEA [None]
  - BACK PAIN [None]
  - FEELING HOT [None]
  - VENTRICULAR EXTRASYSTOLES [None]
